FAERS Safety Report 15250355 (Version 1)
Quarter: 2018Q3

REPORT INFORMATION
  Report Type: Report from Study
  Country: JP (occurrence: JP)
  Receive Date: 20180807
  Receipt Date: 20180807
  Transmission Date: 20181010
  Serious: Yes (Death)
  Sender: FDA-Public Use
  Company Number: JP-PFIZER INC-2018312251

PATIENT

DRUGS (1)
  1. DALTEPARIN SODIUM [Suspect]
     Active Substance: DALTEPARIN SODIUM
     Indication: PROPHYLAXIS
     Dosage: 3000 IU, 1X/DAY (CONTINUOUS IV INFUSION, FROM DAY 1 TO DAY 28)
     Route: 042

REACTIONS (1)
  - Haemorrhage [Fatal]
